FAERS Safety Report 7694246-7 (Version None)
Quarter: 2011Q3

REPORT INFORMATION
  Report Type: 
  Country: None (occurrence: None)
  Receive Date: 20110819
  Receipt Date: 20110812
  Transmission Date: 20111222
  Serious: Yes (Death)
  Sender: FDA-Public Use
  Company Number: US-GLAXOSMITHKLINE-A0931627A

PATIENT
  Age: 56 Year
  Sex: Female

DRUGS (11)
  1. ALBUTEROL SULFATE AUTOHALER [Concomitant]
  2. FLEXERIL [Concomitant]
  3. HYDROCODONE [Suspect]
     Route: 065
  4. ZESTORETIC [Concomitant]
  5. ADVAIR DISKUS 100/50 [Suspect]
     Indication: CHRONIC OBSTRUCTIVE PULMONARY DISEASE
     Dosage: 1PUFF TWICE PER DAY
     Route: 055
     Dates: start: 20101001, end: 20110521
  6. COLACE [Concomitant]
  7. PRILOSEC [Concomitant]
  8. NARCOTICS [Suspect]
     Route: 065
  9. CODEINE SULFATE [Suspect]
     Route: 065
  10. IMITREX [Suspect]
     Indication: MIGRAINE
     Dosage: 25MG AS REQUIRED
     Route: 048
     Dates: start: 20101202, end: 20110521
  11. TYLENOL W/ CODEINE [Concomitant]

REACTIONS (3)
  - DRUG ADMINISTRATION ERROR [None]
  - DEATH [None]
  - TOXICITY TO VARIOUS AGENTS [None]
